FAERS Safety Report 7930963-9 (Version None)
Quarter: 2011Q4

REPORT INFORMATION
  Report Type: 
  Country: None (occurrence: None)
  Receive Date: 20111121
  Receipt Date: 20111116
  Transmission Date: 20120403
  Serious: No
  Sender: FDA-Public Use
  Company Number: US-PFIZER INC-2011281657

PATIENT
  Sex: Male
  Weight: 92.971 kg

DRUGS (4)
  1. LISINOPRIL AND HYDROCHLOROTHIAZIDE [Concomitant]
     Indication: FLUID RETENTION
     Dosage: LISINOPRIL 10 MG/HYDROCHLOROTHIAZIDE 12.5 MG, DAILY
  2. GLUCOVANCE [Concomitant]
     Indication: DIABETES MELLITUS
     Dosage: GLIBENCLAMIDE 5 MG/METFORMIN HCL 500 MG, 2 TABLETS, TWICE DAILY
     Route: 048
  3. JANUVIA [Concomitant]
     Indication: DIABETES MELLITUS
     Dosage: 100 MG, 1X/DAY, IN THE MORNING
  4. LIPITOR [Suspect]
     Indication: BLOOD TRIGLYCERIDES DECREASED
     Dosage: 40 MG, 1X/DAY, IN THE MORNING
     Route: 048
     Dates: start: 20101001, end: 20111101

REACTIONS (2)
  - MYALGIA [None]
  - MUSCULOSKELETAL PAIN [None]
